FAERS Safety Report 21418467 (Version 10)
Quarter: 2023Q2

REPORT INFORMATION
  Report Type: Report from Study
  Country: GB (occurrence: GB)
  Receive Date: 20221006
  Receipt Date: 20230417
  Transmission Date: 20230722
  Serious: Yes (Hospitalization)
  Sender: FDA-Public Use
  Company Number: GB-NOVARTISPH-NVSC2022GB221351

PATIENT
  Age: 50 Year
  Sex: Female
  Weight: 104.55 kg

DRUGS (8)
  1. KISQALI [Suspect]
     Active Substance: RIBOCICLIB
     Indication: HER2 negative breast cancer
     Dosage: 400 MG, OD
     Route: 048
     Dates: start: 20201216, end: 20220928
  2. KISQALI [Suspect]
     Active Substance: RIBOCICLIB
     Dosage: 400 MG OD, C25D8
     Route: 048
     Dates: start: 20221026, end: 20221108
  3. FEMARA [Suspect]
     Active Substance: LETROZOLE
     Indication: HER2 negative breast cancer
     Dosage: 2.5 MG, OD
     Route: 048
     Dates: start: 20201216
  4. GOSERELIN [Suspect]
     Active Substance: GOSERELIN
     Indication: HER2 negative breast cancer
     Dosage: 3.6 MG, QMO
     Route: 058
     Dates: start: 20201216
  5. ZOMETA [Concomitant]
     Active Substance: ZOLEDRONIC ACID
     Indication: Prophylaxis
     Dosage: 4 MG, 6 MONTHLY
     Route: 042
     Dates: start: 20200806
  6. CALCIUM CARBONATE\CHOLECALCIFEROL [Concomitant]
     Active Substance: CALCIUM CARBONATE\CHOLECALCIFEROL
     Indication: Prophylaxis
     Dosage: 2 TABLETS, OD
     Route: 048
     Dates: start: 202004
  7. DULOXETINE [Concomitant]
     Active Substance: DULOXETINE
     Indication: Joint stiffness
     Dosage: 30 MG, OD
     Route: 048
     Dates: start: 20201028
  8. IBUPROFEN [Concomitant]
     Active Substance: IBUPROFEN
     Indication: Joint stiffness
     Dosage: 2 TABLETS, BID
     Route: 065

REACTIONS (2)
  - Pulmonary embolism [Recovered/Resolved]
  - Dyspnoea [Recovered/Resolved]

NARRATIVE: CASE EVENT DATE: 20220928
